FAERS Safety Report 6171247-1 (Version None)
Quarter: 2009Q2

REPORT INFORMATION
  Report Type: 
  Country: None (occurrence: None)
  Receive Date: 20090428
  Receipt Date: 20090428
  Transmission Date: 20091009
  Serious: Yes (Other)
  Sender: FDA-Public Use
  Company Number: None

PATIENT
  Sex: Female

DRUGS (2)
  1. DIGOXIN [Suspect]
     Dosage: ONE TABLET EVERY OTHER DAY OR PO
     Route: 048
     Dates: start: 20060509, end: 20090420
  2. DIGOXIN [Suspect]

REACTIONS (1)
  - VISUAL IMPAIRMENT [None]
